FAERS Safety Report 7864372-8 (Version None)
Quarter: 2011Q4

REPORT INFORMATION
  Report Type: 
  Country: None (occurrence: None)
  Receive Date: 20111028
  Receipt Date: 20111020
  Transmission Date: 20120403
  Serious: Yes (Other)
  Sender: FDA-Public Use
  Company Number: JP-ASTELLAS-2011JP007579

PATIENT
  Age: 63 Year
  Sex: Female

DRUGS (4)
  1. PREDNISOLONE [Concomitant]
     Dosage: 30 MG, UNKNOWN/D
     Route: 065
  2. ETANERCEPT [Concomitant]
     Route: 065
  3. PREDNISOLONE [Concomitant]
     Indication: RHEUMATOID ARTHRITIS
     Dosage: 7 MG, UNKNOWN/D
     Route: 065
  4. PROGRAF [Suspect]
     Indication: RHEUMATOID VASCULITIS
     Dosage: UNK
     Route: 065

REACTIONS (2)
  - GINGIVITIS [None]
  - VASCULAR PSEUDOANEURYSM [None]
